FAERS Safety Report 25471701 (Version 1)
Quarter: 2025Q2

REPORT INFORMATION
  Report Type: Spontaneous
  Country: US (occurrence: US)
  Receive Date: 20250624
  Receipt Date: 20250624
  Transmission Date: 20250716
  Serious: Yes (Other)
  Sender: JOHNSON AND JOHNSON
  Company Number: US-JNJFOC-20250623453

PATIENT
  Sex: Male

DRUGS (1)
  1. XARELTO [Suspect]
     Active Substance: RIVAROXABAN
     Indication: Product used for unknown indication
     Route: 048

REACTIONS (6)
  - Gastric haemorrhage [Unknown]
  - Weight decreased [Unknown]
  - Treatment noncompliance [Unknown]
  - Dysphagia [Unknown]
  - Gingival bleeding [Unknown]
  - Coagulopathy [Unknown]
